FAERS Safety Report 23524960 (Version 2)
Quarter: 2024Q3

REPORT INFORMATION
  Report Type: Spontaneous
  Country: IE (occurrence: IE)
  Receive Date: 20240215
  Receipt Date: 20240925
  Transmission Date: 20241017
  Serious: Yes (Hospitalization)
  Sender: AUROBINDO
  Company Number: IE-KRKA-IE2022K17398LIT

PATIENT
  Age: 50 Year
  Sex: Female

DRUGS (3)
  1. METFORMIN [Suspect]
     Active Substance: METFORMIN HYDROCHLORIDE
     Indication: Type 2 diabetes mellitus
     Dosage: UNK
     Route: 065
  2. ARIPIPRAZOLE [Suspect]
     Active Substance: ARIPIPRAZOLE
     Indication: Postictal psychosis
     Dosage: UNK
     Route: 065
  3. CINACALCET [Suspect]
     Active Substance: CINACALCET
     Indication: Familial hypocalciuric hypercalcaemia
     Dosage: UNK
     Route: 065

REACTIONS (5)
  - Gastrointestinal disorder [Unknown]
  - Adjusted calcium increased [Unknown]
  - Weight increased [Unknown]
  - Cushingoid [Unknown]
  - Off label use [Unknown]
